FAERS Safety Report 4674649-5 (Version None)
Quarter: 2005Q2

REPORT INFORMATION
  Report Type: 
  Country: None (occurrence: None)
  Receive Date: 20050526
  Receipt Date: 20050519
  Transmission Date: 20051028
  Serious: Yes (Disabling)
  Sender: FDA-Public Use
  Company Number: CA-GLAXOSMITHKLINE-A0559799A

PATIENT
  Age: 56 Year
  Sex: Female
  Weight: 48.4 kg

DRUGS (2)
  1. NAVELBINE [Suspect]
     Dosage: 35MG PER DAY
     Route: 042
     Dates: start: 20050420
  2. CISPLATIN [Concomitant]
     Dosage: 105MG PER DAY
     Route: 065
     Dates: start: 20050420

REACTIONS (3)
  - OEDEMA PERIPHERAL [None]
  - PAIN IN EXTREMITY [None]
  - VEIN PAIN [None]
